FAERS Safety Report 24593980 (Version 2)
Quarter: 2024Q4

REPORT INFORMATION
  Report Type: Spontaneous
  Country: US (occurrence: US)
  Receive Date: 20241108
  Receipt Date: 20241118
  Transmission Date: 20250115
  Serious: No
  Sender: PFIZER
  Company Number: US-PFIZER INC-PV202400145254

PATIENT
  Age: 69 Year
  Sex: Male

DRUGS (1)
  1. NURTEC ODT [Suspect]
     Active Substance: RIMEGEPANT SULFATE
     Indication: Migraine
     Dosage: 1 DF (DISSOLVE ON TONGUE ONCE DAILY AS NEEDED. MAX 1 TABLET  PER 24 HOURS)
     Route: 048
     Dates: start: 202410, end: 20241106

REACTIONS (1)
  - Drug ineffective [Unknown]
